FAERS Safety Report 21157487 (Version 1)
Quarter: 2022Q3

REPORT INFORMATION
  Report Type: Spontaneous
  Country: US (occurrence: None)
  Receive Date: 20220730
  Receipt Date: 20220730
  Transmission Date: 20221027
  Serious: Yes (Other)
  Sender: FDA-Public Use
  Company Number: None

PATIENT
  Age: 50 Year
  Sex: Female
  Weight: 114.3 kg

DRUGS (7)
  1. MOUNJARO [Suspect]
     Active Substance: TIRZEPATIDE
     Indication: Type 2 diabetes mellitus
     Dates: start: 20220706, end: 20220720
  2. LORAZEPAM [Concomitant]
     Active Substance: LORAZEPAM
  3. VITAMIN C [Concomitant]
     Active Substance: ASCORBIC ACID
  4. Biotine [Concomitant]
  5. VITAMIN D3 [Concomitant]
     Active Substance: CHOLECALCIFEROL
  6. IRON [Concomitant]
     Active Substance: IRON
  7. Benfotianmine [Concomitant]

REACTIONS (5)
  - Paraesthesia oral [None]
  - Lip swelling [None]
  - Skin exfoliation [None]
  - Skin exfoliation [None]
  - Pain [None]

NARRATIVE: CASE EVENT DATE: 20220715
